FAERS Safety Report 8068862-7 (Version None)
Quarter: 2012Q1

REPORT INFORMATION
  Report Type: 
  Country: None (occurrence: None)
  Receive Date: 20120125
  Receipt Date: 20120120
  Transmission Date: 20120608
  Serious: Yes (Hospitalization)
  Sender: FDA-Public Use
  Company Number: US-BIOGENIDEC-2011BI037262

PATIENT
  Sex: Female

DRUGS (2)
  1. AVONEX [Suspect]
     Route: 030
     Dates: start: 20071001
  2. AVONEX [Suspect]
     Indication: MULTIPLE SCLEROSIS
     Route: 030

REACTIONS (5)
  - NAUSEA [None]
  - DIABETES MELLITUS INADEQUATE CONTROL [None]
  - VOMITING [None]
  - SUBSTANCE ABUSE [None]
  - MULTIPLE SCLEROSIS RELAPSE [None]
